FAERS Safety Report 6404787-8 (Version None)
Quarter: 2009Q4

REPORT INFORMATION
  Report Type: 
  Country: None (occurrence: None)
  Receive Date: 20091016
  Receipt Date: 20091012
  Transmission Date: 20100525
  Serious: Yes (Death, Other)
  Sender: FDA-Public Use
  Company Number: PHHY2009MX44134

PATIENT
  Age: 85 Year
  Sex: Male

DRUGS (1)
  1. DIOVAN HCT [Suspect]
     Indication: HYPERTENSION
     Dosage: 1 TABLET (160/25 MG) PER DAY
     Route: 048
     Dates: end: 20090901

REACTIONS (4)
  - CEREBRAL INFARCTION [None]
  - FALL [None]
  - HEAD INJURY [None]
  - SYNCOPE [None]
